FAERS Safety Report 9293554 (Version 1)
Quarter: 2013Q2

REPORT INFORMATION
  Report Type: Report from Study
  Country: US (occurrence: US)
  Receive Date: 20130516
  Receipt Date: 20130516
  Transmission Date: 20140414
  Serious: Yes (Other)
  Sender: FDA-Public Use
  Company Number: US-GLAXOSMITHKLINE-B0891321A

PATIENT
  Age: 36 Year
  Sex: Male

DRUGS (3)
  1. RETIGABINE [Suspect]
     Indication: PARTIAL SEIZURES
     Route: 048
     Dates: start: 20070329
  2. OXCARBAZEPINE [Concomitant]
     Indication: EPILEPSY
     Dosage: 1800MG PER DAY
  3. LACOSAMIDE [Concomitant]
     Indication: EPILEPSY
     Dosage: 400MG PER DAY

REACTIONS (1)
  - Retinal pigmentation [Unknown]
